FAERS Safety Report 10066705 (Version 1)
Quarter: 2014Q2

REPORT INFORMATION
  Report Type: Spontaneous
  Country: US (occurrence: US)
  Receive Date: 20140408
  Receipt Date: 20140408
  Transmission Date: 20141212
  Serious: Yes (Other)
  Sender: FDA-Public Use
  Company Number: US-BAXTER-2014BAX017017

PATIENT
  Age: 44 Year
  Sex: Female

DRUGS (5)
  1. GAMMAGARD LIQUID [Suspect]
     Indication: ANAEMIA
     Route: 042
  2. METHYLPREDNISOLONE [Suspect]
     Indication: ANAEMIA
     Route: 065
  3. RITUXIMAB [Suspect]
     Indication: ANAEMIA
     Route: 065
  4. IRON SUCROSE [Suspect]
     Indication: ANAEMIA
     Route: 065
  5. RBC TRANSFUSION [Concomitant]
     Indication: ANAEMIA
     Route: 065

REACTIONS (1)
  - No therapeutic response [Not Recovered/Not Resolved]
